FAERS Safety Report 10812873 (Version 1)
Quarter: 2015Q1

REPORT INFORMATION
  Report Type: Report from Study
  Country: US (occurrence: US)
  Receive Date: 20150218
  Receipt Date: 20150218
  Transmission Date: 20150721
  Serious: No
  Sender: FDA-Public Use
  Company Number: US-ABBVIE-14K-163-1274775-00

PATIENT
  Age: 55 Year
  Sex: Female

DRUGS (2)
  1. HUMIRA [Suspect]
     Active Substance: ADALIMUMAB
     Indication: PSORIASIS
     Dates: start: 20140731, end: 20140731
  2. HUMIRA [Suspect]
     Active Substance: ADALIMUMAB
     Indication: PSORIATIC ARTHROPATHY
     Dates: start: 20140807

REACTIONS (6)
  - Asthenia [Unknown]
  - Limb discomfort [Recovered/Resolved]
  - Abnormal behaviour [Unknown]
  - Middle insomnia [Recovered/Resolved]
  - Menorrhagia [Unknown]
  - Fatigue [Unknown]

NARRATIVE: CASE EVENT DATE: 20140731
